FAERS Safety Report 9320954 (Version 2)
Quarter: 2013Q3

REPORT INFORMATION
  Report Type: Spontaneous
  Country: US (occurrence: US)
  Receive Date: 20130531
  Receipt Date: 20130712
  Transmission Date: 20140515
  Serious: No
  Sender: FDA-Public Use
  Company Number: US-009507513-1305USA016923

PATIENT
  Sex: Female

DRUGS (16)
  1. VICTRELIS [Suspect]
     Indication: CHRONIC HEPATITIS C
     Dosage: TAKE 4 CAPSULES (800MG) BY MOUTH THREE TIMES A DAY (EVERY 7-9 HOURS) START ON
     Route: 048
  2. REBETOL [Suspect]
     Route: 048
  3. PEGASYS [Suspect]
  4. CALCIUM (UNSPECIFIED) [Concomitant]
  5. IRON (UNSPECIFIED) [Concomitant]
  6. VITAMINS (UNSPECIFIED) [Concomitant]
  7. COLACE [Concomitant]
  8. OXYCODONE [Concomitant]
  9. FAMOTIDINE [Concomitant]
  10. LORAZEPAM [Concomitant]
  11. BENADRYL [Concomitant]
  12. PROCHLORPERAZINE [Concomitant]
  13. ESCITALOPRAM [Concomitant]
  14. LEXAPRO [Concomitant]
  15. ATIVAN [Concomitant]
  16. PEPCID [Concomitant]
     Route: 048

REACTIONS (10)
  - Nausea [Unknown]
  - Depression [Unknown]
  - Fatigue [Unknown]
  - Pain [Unknown]
  - Influenza like illness [Unknown]
  - Rash [Unknown]
  - Back pain [Unknown]
  - Myalgia [Unknown]
  - Weight decreased [Unknown]
  - Dry mouth [Unknown]
